FAERS Safety Report 4771545-X (Version None)
Quarter: 2005Q3

REPORT INFORMATION
  Report Type: 
  Country: None (occurrence: None)
  Receive Date: 20050916
  Receipt Date: 20050705
  Transmission Date: 20060218
  Serious: Yes (Death)
  Sender: FDA-Public Use
  Company Number: AU-BOEHRINGER INGELHEIM PHARMACEUTICALS, INC.-2005-BP-11330AU

PATIENT
  Sex: Female
  Weight: 100 kg

DRUGS (25)
  1. MOBIC [Suspect]
     Indication: RHEUMATOID ARTHRITIS
     Route: 048
     Dates: start: 20040101, end: 20050101
  2. METHOTREXATE [Suspect]
     Route: 048
  3. PREDNISOLONE [Suspect]
     Route: 048
  4. ENBREL [Concomitant]
  5. MEGAFOL [Concomitant]
     Route: 048
  6. PLAQUENIL [Concomitant]
     Route: 048
  7. SERETIDE ACCUHALER (SALMETEROL/FLUTICASONE) [Concomitant]
     Dosage: 10000/100 MCG/MCG
     Route: 055
  8. NEO-CYTAMEN [Concomitant]
  9. LOSEC (OMEPRAZOLE) [Concomitant]
     Route: 048
  10. AMITRIPTYLINE HCL [Concomitant]
     Route: 048
  11. PANAMAX [Concomitant]
     Route: 048
  12. AZOPT EYE DROPS (BRINZOLAMIDE) [Concomitant]
  13. QUINATE (QUININE) [Concomitant]
     Dosage: 300-600 MG
     Route: 048
  14. VENTOLIN CFC-FREE MDI (SALBUTAMOL) [Concomitant]
     Route: 055
  15. NORVASC [Concomitant]
     Route: 048
  16. VENTOLIN NEBULES (SALBUTAMOL) [Concomitant]
     Dosage: 30 MG/15 ML
     Route: 055
  17. ATROVENT NEBULES (IPRATROPIUM) [Concomitant]
     Dosage: 2000 MCG/4 ML
     Route: 055
  18. MAXOLON [Concomitant]
     Route: 048
  19. ACETAMINOPHEN W/ CODEINE [Concomitant]
     Dosage: 4000/240 MG/MG
     Route: 048
  20. ALPHAGAN EYE DROPS (BRIMONIDINE) [Concomitant]
  21. MOGADON [Concomitant]
     Route: 048
  22. MAXIDEX EYE DROPS (DEXAMETHASONE) [Concomitant]
  23. FOSAMAX [Concomitant]
     Route: 048
  24. CELLUFRESH [Concomitant]
  25. PHENERGAN (PROMETHAZINE) [Concomitant]
     Route: 048

REACTIONS (5)
  - DUODENAL ULCER [None]
  - DUODENAL ULCER PERFORATION [None]
  - GASTROINTESTINAL NECROSIS [None]
  - HAEMORRHAGE [None]
  - MULTI-ORGAN FAILURE [None]
